FAERS Safety Report 6605156-8 (Version None)
Quarter: 2010Q1

REPORT INFORMATION
  Report Type: 
  Country: None (occurrence: None)
  Receive Date: 20100226
  Receipt Date: 20100219
  Transmission Date: 20100710
  Serious: Yes (Hospitalization, Other)
  Sender: FDA-Public Use
  Company Number: US-ELI_LILLY_AND_COMPANY-US201001001919

PATIENT
  Sex: Female
  Weight: 108.84 kg

DRUGS (8)
  1. BYETTA [Suspect]
     Indication: TYPE 2 DIABETES MELLITUS
     Dosage: 10 UG, 2/D
     Route: 058
     Dates: start: 20070101
  2. GLIMEPIRIDE [Concomitant]
  3. GLYBURIDE [Concomitant]
  4. DIOVAN HCT [Concomitant]
     Indication: BLOOD PRESSURE
     Dosage: UNK, DAILY (1/D)
  5. ZETIA [Concomitant]
     Dosage: 10 MG, DAILY (1/D)
  6. ACTOS [Concomitant]
     Dosage: 30 MG, DAILY (1/D)
  7. HORMONES NOS [Concomitant]
     Route: 062
  8. MONOPRIL [Concomitant]

REACTIONS (10)
  - ANKLE FRACTURE [None]
  - BACK PAIN [None]
  - BLOOD GLUCOSE INCREASED [None]
  - DYSSTASIA [None]
  - FALL [None]
  - FEELING HOT [None]
  - JOINT SWELLING [None]
  - MUSCLE RUPTURE [None]
  - OEDEMA PERIPHERAL [None]
  - PAIN IN EXTREMITY [None]
